FAERS Safety Report 5887510-5 (Version None)
Quarter: 2008Q3

REPORT INFORMATION
  Report Type: 
  Country: None (occurrence: None)
  Receive Date: 20080918
  Receipt Date: 20080904
  Transmission Date: 20090109
  Serious: Yes (Hospitalization)
  Sender: FDA-Public Use
  Company Number: PHHY2008FR20921

PATIENT
  Sex: Male

DRUGS (3)
  1. MYFORTIC [Suspect]
     Dosage: 1440MG/ DAY
     Dates: start: 20071208
  2. NEORAL [Suspect]
  3. CORTICOSTEROIDS [Concomitant]
     Dosage: 10 MG/ DAY

REACTIONS (2)
  - NEUTROPENIA [None]
  - PYREXIA [None]
